FAERS Safety Report 14869618 (Version 1)
Quarter: 2018Q2

REPORT INFORMATION
  Report Type: Spontaneous
  Country: US (occurrence: US)
  Receive Date: 20180423
  Receipt Date: 20180423
  Transmission Date: 20180711
  Serious: Yes (Death)
  Sender: FDA-Public Use
  Company Number: None

PATIENT
  Age: 85 Year
  Sex: Male

DRUGS (1)
  1. REVLIMID [Suspect]
     Active Substance: LENALIDOMIDE
     Indication: PLASMA CELL MYELOMA
     Route: 048
     Dates: start: 20180108, end: 20180322

REACTIONS (4)
  - Decreased appetite [None]
  - Failure to thrive [None]
  - Intestinal ischaemia [None]
  - Hypotension [None]

NARRATIVE: CASE EVENT DATE: 20180322
